FAERS Safety Report 9494888 (Version 1)
Quarter: 2013Q3

REPORT INFORMATION
  Report Type: Spontaneous
  Country: LB (occurrence: None)
  Receive Date: 20130828
  Receipt Date: 20130828
  Transmission Date: 20140515
  Serious: Yes (Other)
  Sender: FDA-Public Use
  Company Number: B0916798A

PATIENT
  Age: 8 Year
  Sex: 0

DRUGS (4)
  1. TOPOTECAN HYDROCHLORIDE [Suspect]
     Indication: EWING^S SARCOMA
  2. CYCLOPHOSPHAMIDE [Suspect]
     Indication: EWING^S SARCOMA
  3. GRANULOCYTE-MACROPHAGE COLONY-STIMULATING FACTOR [Suspect]
     Indication: EWING^S SARCOMA
  4. MESNA [Suspect]
     Indication: EWING^S SARCOMA

REACTIONS (3)
  - Cystitis haemorrhagic [None]
  - Disease progression [None]
  - Ewing^s sarcoma [None]
